FAERS Safety Report 17556199 (Version 1)
Quarter: 2020Q1

REPORT INFORMATION
  Report Type: Spontaneous
  Country: US (occurrence: US)
  Receive Date: 20200318
  Receipt Date: 20200318
  Transmission Date: 20200409
  Serious: No
  Sender: FDA-Public Use
  Company Number: US-THERAPEUTICSMD-2020TMD00379

PATIENT
  Age: 57 Year
  Sex: Female
  Weight: 67.12 kg

DRUGS (3)
  1. IMVEXXY [Suspect]
     Active Substance: ESTRADIOL
     Indication: VULVOVAGINAL DRYNESS
     Dosage: 10 ?G, 1X/DAY FOR 2 WEEKS
     Route: 067
     Dates: start: 202001, end: 202001
  2. UNSPECIFIED VITAMINS [Concomitant]
     Active Substance: VITAMINS
  3. IMVEXXY [Suspect]
     Active Substance: ESTRADIOL
     Indication: DYSPAREUNIA
     Dosage: 10 ?G, 2X/WEEK FOR 1 DOSE
     Route: 067
     Dates: start: 202001, end: 202001

REACTIONS (4)
  - Abdominal pain upper [Recovered/Resolved]
  - Vision blurred [Recovering/Resolving]
  - Faeces discoloured [Recovered/Resolved]
  - Unevaluable event [Recovered/Resolved]

NARRATIVE: CASE EVENT DATE: 202001
